FAERS Safety Report 7547529-5 (Version None)
Quarter: 2011Q2

REPORT INFORMATION
  Report Type: 
  Country: None (occurrence: None)
  Receive Date: 20110614
  Receipt Date: 20110607
  Transmission Date: 20111010
  Serious: No
  Sender: FDA-Public Use
  Company Number: US-PFIZER INC-2011035683

PATIENT
  Sex: Female

DRUGS (7)
  1. METOPROLOL [Concomitant]
     Dosage: UNK
  2. SIMVASTATIN [Concomitant]
     Dosage: UNK
  3. PERCOCET [Concomitant]
     Dosage: UNK
  4. TOVIAZ [Suspect]
     Indication: INCONTINENCE
  5. ASPIRIN [Concomitant]
     Dosage: UNK
  6. COLACE [Concomitant]
     Dosage: UNK
  7. TOVIAZ [Suspect]
     Indication: HYPERTONIC BLADDER
     Dosage: 8 MG, DAILY
     Route: 048
     Dates: start: 20110106, end: 20110107

REACTIONS (4)
  - ANXIETY [None]
  - SEDATION [None]
  - FEELING JITTERY [None]
  - DYSPNOEA [None]
